FAERS Safety Report 24697011 (Version 1)
Quarter: 2024Q4

REPORT INFORMATION
  Report Type: Spontaneous
  Country: FR (occurrence: FR)
  Receive Date: 20241204
  Receipt Date: 20241204
  Transmission Date: 20250114
  Serious: Yes (Hospitalization)
  Sender: ELI LILLY AND COMPANY
  Company Number: None

PATIENT
  Age: 66 Year
  Sex: Male
  Weight: 89 kg

DRUGS (18)
  1. PEMETREXED [Suspect]
     Active Substance: PEMETREXED
     Indication: Lung adenocarcinoma
     Dosage: 1000 MG, DAILY
     Route: 042
     Dates: start: 20240711, end: 20240711
  2. PEMETREXED [Suspect]
     Active Substance: PEMETREXED
     Dosage: 1000 MG, DAILY
     Route: 042
     Dates: start: 20240801, end: 20240801
  3. PEMETREXED [Suspect]
     Active Substance: PEMETREXED
     Dosage: 1000 MG, DAILY
     Route: 042
     Dates: start: 20240822, end: 20240822
  4. PEMETREXED [Suspect]
     Active Substance: PEMETREXED
     Dosage: 1000 MG, UNKNOWN
     Route: 042
     Dates: start: 20241017, end: 20241017
  5. CARBOPLATIN [Suspect]
     Active Substance: CARBOPLATIN
     Indication: Lung adenocarcinoma
     Dosage: 550 MG, DAILY
     Route: 042
     Dates: start: 20240711, end: 20240711
  6. CARBOPLATIN [Suspect]
     Active Substance: CARBOPLATIN
     Dosage: 550 MG, DAILY
     Route: 042
     Dates: start: 20240801, end: 20240801
  7. CARBOPLATIN [Suspect]
     Active Substance: CARBOPLATIN
     Dosage: 570 MG, DAILY
     Route: 042
     Dates: start: 20240822, end: 20240822
  8. CARBOPLATIN [Suspect]
     Active Substance: CARBOPLATIN
     Dosage: 495 MG, UNKNOWN
     Route: 042
     Dates: start: 20241017, end: 20241017
  9. PIPERACILLIN SODIUM\TAZOBACTAM SODIUM [Concomitant]
     Active Substance: PIPERACILLIN SODIUM\TAZOBACTAM SODIUM
     Indication: Febrile neutropenia
     Dosage: 1-1-1-1
     Route: 042
     Dates: start: 20241102, end: 20241103
  10. ACETAMINOPHEN [Concomitant]
     Active Substance: ACETAMINOPHEN
     Indication: Product used for unknown indication
     Dosage: AUTOMEDICATION
     Route: 048
     Dates: start: 20241102, end: 20241102
  11. FOLIC ACID [Concomitant]
     Active Substance: FOLIC ACID
     Indication: Product used for unknown indication
     Dosage: 0.4 MG, DAILY
     Route: 048
     Dates: start: 20240912
  12. PREDNISONE [Concomitant]
     Active Substance: PREDNISONE
     Indication: Chemotherapy side effect prophylaxis
     Dosage: 40 MG, CYCLICAL
     Route: 048
     Dates: start: 20240912
  13. ONDANSETRON [Concomitant]
     Active Substance: ONDANSETRON
     Indication: Chemotherapy side effect prophylaxis
     Dosage: 8 MG, CYCLICAL
     Route: 048
  14. POLYETHYLENE GLYCOL 4000 [Concomitant]
     Active Substance: POLYETHYLENE GLYCOL 4000
     Indication: Constipation
     Dosage: 20 G, DAILY
     Route: 048
     Dates: start: 20241102
  15. CALCIUM PHOSPHATE, DIBASIC, ANHYDROUS\MAGNESIUM GLYCEROPHOSPHATE\PHOSP [Concomitant]
     Active Substance: CALCIUM PHOSPHATE, DIBASIC, ANHYDROUS\MAGNESIUM GLYCEROPHOSPHATE\PHOSPHORIC ACID\SODIUM PHOSPHATE, D
     Indication: Hypophosphataemia
     Dosage: 472.8 MG, BID
     Route: 048
     Dates: start: 20241102
  16. CEFTRIAXONE [Concomitant]
     Active Substance: CEFTRIAXONE
     Indication: Febrile neutropenia
     Dosage: 1 G, DAILY
     Route: 042
     Dates: start: 20241104, end: 20241109
  17. LOVENOX [Concomitant]
     Active Substance: ENOXAPARIN SODIUM
     Indication: Thrombosis prophylaxis
     Dosage: 4000 INTERNATIONAL UNIT, DAILY
     Route: 058
     Dates: start: 20241103
  18. NEFOPAM HYDROCHLORIDE [Concomitant]
     Active Substance: NEFOPAM HYDROCHLORIDE
     Indication: Analgesic intervention supportive therapy
     Dosage: 20 MG, DAILY
     Route: 048
     Dates: start: 20241102

REACTIONS (1)
  - Hepatic cytolysis [Recovering/Resolving]

NARRATIVE: CASE EVENT DATE: 20241102
